FAERS Safety Report 14236013 (Version 1)
Quarter: 2017Q4

REPORT INFORMATION
  Report Type: Spontaneous
  Country: CA (occurrence: CA)
  Receive Date: 20171129
  Receipt Date: 20171129
  Transmission Date: 20180321
  Serious: Yes (Other)
  Sender: FDA-Public Use
  Company Number: CA-CONCORDIA PHARMACEUTICALS INC.-GSH201711-006502

PATIENT
  Age: 68 Year
  Sex: Female

DRUGS (5)
  1. REMICADE [Suspect]
     Active Substance: INFLIXIMAB
     Indication: PRODUCT USED FOR UNKNOWN INDICATION
     Route: 042
  2. METHOTREXATE. [Suspect]
     Active Substance: METHOTREXATE
     Indication: RHEUMATOID ARTHRITIS
     Route: 065
  3. ORENCIA [Suspect]
     Active Substance: ABATACEPT
     Indication: PRODUCT USED FOR UNKNOWN INDICATION
     Route: 065
  4. ENBREL [Suspect]
     Active Substance: ETANERCEPT
     Indication: RHEUMATOID ARTHRITIS
     Route: 065
  5. HYDROXYCHLOROQUINE [Suspect]
     Active Substance: HYDROXYCHLOROQUINE
     Indication: PRODUCT USED FOR UNKNOWN INDICATION
     Route: 048

REACTIONS (15)
  - Chronic sinusitis [Unknown]
  - Monocytosis [Unknown]
  - Psoriasis [Unknown]
  - Red blood cell sedimentation rate abnormal [Unknown]
  - Nausea [Unknown]
  - C-reactive protein abnormal [Unknown]
  - Infection [Unknown]
  - Drug intolerance [Unknown]
  - Arthritis [Unknown]
  - Neutropenia [Unknown]
  - Sinusitis [Unknown]
  - Pruritus [Unknown]
  - Urinary tract infection [Unknown]
  - Bronchitis [Unknown]
  - Synovitis [Unknown]
